FAERS Safety Report 5418616-2 (Version None)
Quarter: 2007Q3

REPORT INFORMATION
  Report Type: 
  Country: None (occurrence: None)
  Receive Date: 20070817
  Receipt Date: 20070809
  Transmission Date: 20080115
  Serious: Yes (Other)
  Sender: FDA-Public Use
  Company Number: US-PFIZER INC-2006089649

PATIENT
  Sex: Male

DRUGS (1)
  1. LIPITOR [Suspect]
     Route: 048

REACTIONS (6)
  - AMNESIA [None]
  - DEPRESSION [None]
  - DIABETIC NEUROPATHY [None]
  - DYSARTHRIA [None]
  - FATIGUE [None]
  - NEUROPATHY PERIPHERAL [None]
